FAERS Safety Report 8452159-7 (Version None)
Quarter: 2012Q2

REPORT INFORMATION
  Report Type: 
  Country: None (occurrence: None)
  Receive Date: 20120620
  Receipt Date: 20120406
  Transmission Date: 20120825
  Serious: Yes (Hospitalization)
  Sender: FDA-Public Use
  Company Number: JP-GLAXOSMITHKLINE-B0794925A

PATIENT
  Sex: Female

DRUGS (6)
  1. DEPAS [Concomitant]
     Dosage: 1MG PER DAY
     Route: 048
     Dates: start: 20101001
  2. PAXIL [Suspect]
     Indication: DEPRESSION
     Dosage: 30MG PER DAY
     Route: 048
     Dates: start: 20040401, end: 20120301
  3. PAXIL [Suspect]
     Dosage: 25MG PER DAY
     Route: 048
     Dates: start: 20120301
  4. GOODMIN [Concomitant]
     Dosage: .25MG PER DAY
     Route: 048
     Dates: start: 20101001
  5. LAMICTAL [Suspect]
     Indication: DEPRESSION
     Dosage: 50MG PER DAY
     Route: 048
     Dates: start: 20110901
  6. ESTAZOLAM [Concomitant]
     Dosage: 2MG PER DAY
     Route: 048
     Dates: start: 20101001

REACTIONS (3)
  - BENIGN BREAST NEOPLASM [None]
  - PHYLLODES TUMOUR [None]
  - BREAST MASS [None]
